FAERS Safety Report 18016070 (Version 1)
Quarter: 2020Q3

REPORT INFORMATION
  Report Type: Spontaneous
  Country: CH (occurrence: CH)
  Receive Date: 20200713
  Receipt Date: 20200713
  Transmission Date: 20201103
  Serious: Yes (Hospitalization)
  Sender: FDA-Public Use
  Company Number: CH-NAPPMUNDI-GBR-2020-0077674

PATIENT
  Age: 81 Year
  Sex: Male
  Weight: 52 kg

DRUGS (19)
  1. MST CONTINUS [Suspect]
     Active Substance: MORPHINE SULFATE
     Dosage: UNK
     Route: 065
     Dates: start: 20200613, end: 20200616
  2. MORPHINE SULFATE. [Suspect]
     Active Substance: MORPHINE SULFATE
     Dosage: UNK
     Route: 065
     Dates: start: 20200618, end: 20200619
  3. MST CONTINUS [Suspect]
     Active Substance: MORPHINE SULFATE
     Indication: PAIN OF SKIN
     Dosage: UNK
     Route: 065
     Dates: start: 20200620, end: 20200621
  4. MST CONTINUS [Suspect]
     Active Substance: MORPHINE SULFATE
     Dosage: UNK
     Route: 065
     Dates: start: 20200617, end: 20200617
  5. NOVALGIN                           /00169801/ [Concomitant]
     Active Substance: ACETAMINOPHEN\CAFFEINE\PROPYPHENAZONE
     Indication: PAIN OF SKIN
     Dosage: UNK
     Dates: start: 20200621
  6. MST CONTINUS [Suspect]
     Active Substance: MORPHINE SULFATE
     Dosage: UNK
     Route: 065
     Dates: start: 20200619, end: 20200619
  7. MST CONTINUS [Suspect]
     Active Substance: MORPHINE SULFATE
     Dosage: UNK
     Route: 065
     Dates: start: 20200611, end: 20200612
  8. MORPHINE SULFATE. [Suspect]
     Active Substance: MORPHINE SULFATE
     Dosage: UNK
     Route: 065
     Dates: start: 20200621
  9. MORPHINE SULFATE. [Suspect]
     Active Substance: MORPHINE SULFATE
     Indication: PAIN OF SKIN
     Dosage: UNK
     Route: 065
     Dates: start: 20200622, end: 20200622
  10. TAZOBAC [Concomitant]
     Active Substance: PIPERACILLIN SODIUM\TAZOBACTAM SODIUM
     Indication: SKIN INFECTION
     Dosage: UNK
     Route: 065
     Dates: start: 20200611, end: 20200616
  11. DAFALGAN [Concomitant]
     Active Substance: ACETAMINOPHEN
     Dosage: UNK
     Route: 065
     Dates: start: 20200617, end: 20200617
  12. MST CONTINUS [Suspect]
     Active Substance: MORPHINE SULFATE
     Dosage: UNK
     Route: 065
     Dates: start: 20200610, end: 20200610
  13. HYDROMORPHONE HYDROCHLORIDE. [Suspect]
     Active Substance: HYDROMORPHONE HYDROCHLORIDE
     Indication: PAIN OF SKIN
     Dosage: UNK
     Route: 065
     Dates: start: 20200623, end: 20200624
  14. CIPROXIN                           /00697201/ [Concomitant]
     Active Substance: CIPROFLOXACIN
     Indication: SKIN INFECTION
     Dosage: UNK
     Route: 065
  15. MST CONTINUS [Suspect]
     Active Substance: MORPHINE SULFATE
     Dosage: UNK
     Route: 065
     Dates: start: 20200613, end: 20200616
  16. MORPHINE SULFATE. [Suspect]
     Active Substance: MORPHINE SULFATE
     Dosage: UNK
     Route: 065
     Dates: start: 20200619
  17. MORPHINE SULFATE. [Suspect]
     Active Substance: MORPHINE SULFATE
     Dosage: UNK
     Route: 065
     Dates: start: 20200613, end: 20200617
  18. NOVALGIN                           /00169801/ [Concomitant]
     Active Substance: ACETAMINOPHEN\CAFFEINE\PROPYPHENAZONE
     Dosage: UNK
     Route: 065
     Dates: start: 20200612, end: 20200620
  19. DAFALGAN [Concomitant]
     Active Substance: ACETAMINOPHEN
     Indication: PAIN OF SKIN
     Dosage: UNK
     Dates: start: 20200618

REACTIONS (3)
  - Drug intolerance [Unknown]
  - Overdose [Unknown]
  - Delirium [Not Recovered/Not Resolved]

NARRATIVE: CASE EVENT DATE: 20200624
